FAERS Safety Report 4697311-1 (Version None)
Quarter: 2005Q2

REPORT INFORMATION
  Report Type: 
  Country: None (occurrence: None)
  Receive Date: 20050622
  Receipt Date: 20050615
  Transmission Date: 20051028
  Serious: Yes (Death)
  Sender: FDA-Public Use
  Company Number: DE-BRISTOL-MYERS SQUIBB COMPANY-13005376

PATIENT
  Age: 67 Year
  Sex: Female

DRUGS (5)
  1. FLUPHENAZINE HCL [Suspect]
     Indication: SCHIZOPHRENIA, PARANOID TYPE
     Route: 048
     Dates: start: 20041019, end: 20041230
  2. FLUPHENAZINE [Suspect]
     Indication: SCHIZOPHRENIA, PARANOID TYPE
  3. TAVOR [Concomitant]
     Route: 048
     Dates: start: 19960101, end: 20041230
  4. PARKOPAN [Concomitant]
     Route: 048
     Dates: start: 20000101, end: 20041230
  5. TRUXAL [Concomitant]
     Route: 048
     Dates: start: 20040920, end: 20041230

REACTIONS (2)
  - HYPOTHERMIA [None]
  - SUDDEN CARDIAC DEATH [None]
